FAERS Safety Report 6353402-0 (Version None)
Quarter: 2009Q3

REPORT INFORMATION
  Report Type: 
  Country: None (occurrence: None)
  Receive Date: 20090912
  Receipt Date: 20090622
  Transmission Date: 20100115
  Serious: No
  Sender: FDA-Public Use
  Company Number: US-ABBOTT-08P-163-0474126-00

PATIENT
  Sex: Female
  Weight: 45.4 kg

DRUGS (6)
  1. HUMIRA [Suspect]
     Indication: JUVENILE ARTHRITIS
     Route: 058
     Dates: start: 20080902
  2. SULFASALAZINE [Concomitant]
     Indication: ANALGESIC INTERVENTION SUPPORTIVE THERAPY
     Route: 048
     Dates: start: 20060101
  3. SULINDAC [Concomitant]
     Indication: ANALGESIC INTERVENTION SUPPORTIVE THERAPY
     Route: 048
     Dates: start: 20060101
  4. LEVOTHYROXINE SODIUM [Concomitant]
     Indication: HYPOTHYROIDISM
     Route: 048
     Dates: start: 20060101
  5. ASPIRIN [Concomitant]
     Indication: ANTIINFLAMMATORY THERAPY
     Route: 048
     Dates: start: 20070101
  6. PREDNISONE [Concomitant]
     Indication: STEROID THERAPY
     Route: 048
     Dates: start: 20070101

REACTIONS (2)
  - INCORRECT DOSE ADMINISTERED [None]
  - INJECTION SITE EXTRAVASATION [None]
